FAERS Safety Report 8500659-3 (Version None)
Quarter: 2012Q3

REPORT INFORMATION
  Report Type: 
  Country: None (occurrence: None)
  Receive Date: 20120710
  Receipt Date: 20120628
  Transmission Date: 20120928
  Serious: Yes (Death, Life-Threatening)
  Sender: FDA-Public Use
  Company Number: JP-ROCHE-1083315

PATIENT
  Age: 64 Year
  Sex: Male

DRUGS (10)
  1. SPIRIVA [Concomitant]
     Dates: start: 20120121, end: 20120130
  2. LOXONIN [Concomitant]
     Dates: start: 20120314, end: 20120323
  3. PEMETREXED DISODIUM [Suspect]
     Indication: NON-SMALL CELL LUNG CANCER
     Route: 042
     Dates: start: 20111121, end: 20120317
  4. VITAMIN B12 [Concomitant]
     Dates: start: 20111114, end: 20120317
  5. PANVITAN [Concomitant]
     Dates: start: 20111114, end: 20120323
  6. CYANOCOBALAMIN/FOLIC ACID [Concomitant]
     Dates: start: 20111121
  7. AVASTIN [Suspect]
     Indication: NON-SMALL CELL LUNG CANCER
     Dates: start: 20120225
  8. GRANISETRON [Concomitant]
     Dates: start: 20111121, end: 20120317
  9. CARBOPLATIN [Suspect]
     Indication: NON-SMALL CELL LUNG CANCER
     Dates: start: 20111121, end: 20120130
  10. ACETAMINOPHEN [Concomitant]
     Dates: start: 20111114, end: 20120323

REACTIONS (2)
  - PNEUMONIA [None]
  - CARDIAC ARREST [None]
